FAERS Safety Report 6293840-8 (Version None)
Quarter: 2009Q3

REPORT INFORMATION
  Report Type: 
  Country: None (occurrence: None)
  Receive Date: 20090803
  Receipt Date: 20090727
  Transmission Date: 20100115
  Serious: Yes (Death)
  Sender: FDA-Public Use
  Company Number: US-CELGENEUS-163-20785-09060834

PATIENT
  Sex: Male

DRUGS (1)
  1. THALOMID [Suspect]
     Indication: CASTLEMAN'S DISEASE
     Route: 048
     Dates: start: 20090218, end: 20090101

REACTIONS (1)
  - CEREBRAL INFARCTION [None]
